FAERS Safety Report 19690234 (Version 5)
Quarter: 2024Q4

REPORT INFORMATION
  Report Type: Spontaneous
  Country: US (occurrence: US)
  Receive Date: 20210812
  Receipt Date: 20241231
  Transmission Date: 20250114
  Serious: No
  Sender: KYOWA
  Company Number: US-KYOWAKIRIN-2021BKK013763

PATIENT

DRUGS (9)
  1. NOURIANZ [Suspect]
     Active Substance: ISTRADEFYLLINE
     Indication: Parkinson^s disease
     Dosage: 40 MG, QD (TAKE 1 TABLET EVERY DAY BY ORAL ROUT)
     Route: 048
     Dates: start: 20210127
  2. AMANTADINE [Concomitant]
     Active Substance: AMANTADINE
     Indication: Product used for unknown indication
     Dosage: 100 MG
     Route: 065
  3. ENTACAPONE [Concomitant]
     Active Substance: ENTACAPONE
     Indication: Product used for unknown indication
     Dosage: 200 MG
     Route: 065
  4. QUETIAPINE [Concomitant]
     Active Substance: QUETIAPINE
     Indication: Product used for unknown indication
     Dosage: 25 MG
     Route: 065
  5. RYTARY [Concomitant]
     Active Substance: CARBIDOPA\LEVODOPA
     Indication: Product used for unknown indication
     Dosage: 145 MG
     Route: 065
  6. SIMVASTATIN [Concomitant]
     Active Substance: SIMVASTATIN
     Indication: Product used for unknown indication
     Dosage: 40 MG
     Route: 065
  7. TALTZ [Concomitant]
     Active Substance: IXEKIZUMAB
     Indication: Product used for unknown indication
     Dosage: 80 MG/ML
     Route: 065
  8. OMEPRAZOLE [Concomitant]
     Active Substance: OMEPRAZOLE
     Indication: Product used for unknown indication
     Dosage: 20 MG
     Route: 065
  9. INBRIJA [Concomitant]
     Active Substance: LEVODOPA
     Indication: Product used for unknown indication
     Dosage: 42 MG

REACTIONS (7)
  - Condition aggravated [Not Recovered/Not Resolved]
  - Nasopharyngitis [Unknown]
  - Rhinorrhoea [Unknown]
  - Disease progression [Unknown]
  - Sleep disorder [Unknown]
  - Constipation [Unknown]
  - Dyskinesia [Unknown]

NARRATIVE: CASE EVENT DATE: 20210101
